FAERS Safety Report 7447868-2 (Version None)
Quarter: 2011Q2

REPORT INFORMATION
  Report Type: 
  Country: None (occurrence: None)
  Receive Date: 20110429
  Receipt Date: 20080420
  Transmission Date: 20111010
  Serious: No
  Sender: FDA-Public Use
  Company Number: US-ASTRAZENECA-2004UW14379

PATIENT
  Age: 77 Year
  Sex: Female
  Weight: 77.1 kg

DRUGS (12)
  1. NEXIUM [Suspect]
     Route: 048
     Dates: start: 20060101
  2. SYNTHROID [Concomitant]
  3. NEXIUM [Suspect]
     Indication: NAUSEA
     Route: 048
     Dates: start: 20040501
  4. NEXIUM [Suspect]
     Indication: INFLUENZA LIKE ILLNESS
     Route: 048
     Dates: start: 20040501
  5. CAPOTEN (GENERIC) [Concomitant]
  6. FOLIC ACID [Concomitant]
  7. SENIOR VITAMINS [Concomitant]
  8. VITAMIN B-12 [Concomitant]
  9. NEXIUM [Suspect]
     Route: 048
     Dates: start: 20060101
  10. BENICAR [Concomitant]
  11. PREMPRO [Concomitant]
  12. VITAMIN B6 [Concomitant]

REACTIONS (6)
  - URINARY TRACT INFECTION [None]
  - NAUSEA [None]
  - BACK PAIN [None]
  - GASTROOESOPHAGEAL REFLUX DISEASE [None]
  - INFLUENZA LIKE ILLNESS [None]
  - DRUG DOSE OMISSION [None]
